FAERS Safety Report 16996859 (Version 1)
Quarter: 2019Q4

REPORT INFORMATION
  Report Type: Spontaneous
  Country: IL (occurrence: IL)
  Receive Date: 20191105
  Receipt Date: 20191105
  Transmission Date: 20200122
  Serious: Yes (Other)
  Sender: FDA-Public Use
  Company Number: IL-CELGENEUS-ISR-20191100018

PATIENT
  Age: 45 Year
  Sex: Female

DRUGS (1)
  1. OTEZLA [Suspect]
     Active Substance: APREMILAST
     Indication: PSORIATIC ARTHROPATHY
     Route: 048
     Dates: start: 201810, end: 201910

REACTIONS (1)
  - Parkinson^s disease [Unknown]

NARRATIVE: CASE EVENT DATE: 201910
